FAERS Safety Report 19115142 (Version 1)
Quarter: 2021Q2

REPORT INFORMATION
  Report Type: Other
  Country: IT (occurrence: IT)
  Receive Date: 20210408
  Receipt Date: 20210408
  Transmission Date: 20210717
  Serious: Yes (Life-Threatening)
  Sender: FDA-Public Use
  Company Number: IT-VALIDUS PHARMACEUTICALS LLC-IT-2021VAL000488

PATIENT
  Age: 83 Year
  Sex: Female

DRUGS (9)
  1. RAMIPRIL. [Suspect]
     Active Substance: RAMIPRIL
     Indication: MYOCARDIAL INFARCTION
     Dosage: 2.5 MG, QD
     Route: 048
     Dates: start: 20070228, end: 20070426
  2. ANTRA                              /00661201/ [Concomitant]
     Active Substance: OMEPRAZOLE
     Indication: HYPERCHLORHYDRIA
     Dosage: UNK
     Dates: start: 20070228, end: 20070426
  3. INDOBUFENE [Concomitant]
     Indication: PRODUCT USED FOR UNKNOWN INDICATION
     Dosage: UNK
     Dates: start: 20070228, end: 20070426
  4. LANOXIN [Concomitant]
     Active Substance: DIGOXIN
     Indication: MYOCARDIAL ISCHAEMIA
     Dosage: UNK
     Dates: start: 20070228, end: 20070426
  5. CONGESCOR [Concomitant]
     Active Substance: BISOPROLOL
     Indication: MYOCARDIAL ISCHAEMIA
     Dosage: UNK
     Dates: start: 20070228, end: 20070426
  6. LASIX [Suspect]
     Active Substance: FUROSEMIDE
     Indication: MYOCARDIAL ISCHAEMIA
     Dosage: 25 MG, QD
     Route: 048
     Dates: start: 20070228, end: 20070426
  7. RAMIPRIL. [Suspect]
     Active Substance: RAMIPRIL
     Indication: MYOCARDIAL ISCHAEMIA
  8. LUVION                             /00252502/ [Suspect]
     Active Substance: CANRENOATE POTASSIUM
     Indication: MYOCARDIAL ISCHAEMIA
     Dosage: 50 MG, QOD
     Route: 048
     Dates: start: 20070201, end: 20070426
  9. DELTACORTENE [Concomitant]
     Active Substance: PREDNISONE
     Indication: MYOCARDIAL ISCHAEMIA
     Dosage: UNK
     Dates: start: 20070228, end: 20070426

REACTIONS (5)
  - Hypovolaemic shock [Not Recovered/Not Resolved]
  - Bradycardia [Recovering/Resolving]
  - Cardioactive drug level increased [Recovering/Resolving]
  - Drug interaction [Unknown]
  - Acute kidney injury [Recovering/Resolving]

NARRATIVE: CASE EVENT DATE: 20070426
